FAERS Safety Report 11242931 (Version 1)
Quarter: 2015Q3

REPORT INFORMATION
  Report Type: Spontaneous
  Country: US (occurrence: None)
  Receive Date: 20150702
  Receipt Date: 20150702
  Transmission Date: 20151125
  Serious: Yes (Hospitalization)
  Sender: FDA-Public Use
  Company Number: ORE201506-000087

PATIENT
  Age: 38 Year
  Sex: Male
  Weight: 86.64 kg

DRUGS (1)
  1. ZUBSOLV [Suspect]
     Active Substance: BUPRENORPHINE HYDROCHLORIDE\NALOXONE HYDROCHLORIDE
     Indication: DRUG DEPENDENCE
     Dosage: 5.7/1.4 MG ( 2 DOSAGE FORMS, 1 IN 1 D)
     Route: 060
     Dates: start: 20150526

REACTIONS (3)
  - Blister [None]
  - Suicidal ideation [None]
  - Hallucination [None]

NARRATIVE: CASE EVENT DATE: 20150607
